FAERS Safety Report 24636493 (Version 1)
Quarter: 2024Q4

REPORT INFORMATION
  Report Type: Spontaneous
  Country: FR (occurrence: FR)
  Receive Date: 20241119
  Receipt Date: 20241119
  Transmission Date: 20250115
  Serious: Yes (Hospitalization)
  Sender: NOVARTIS
  Company Number: None

PATIENT
  Age: 14 Year
  Sex: Male
  Weight: 63.6 kg

DRUGS (1)
  1. MEKINIST [Suspect]
     Active Substance: TRAMETINIB DIMETHYL SULFOXIDE
     Indication: Astrocytoma
     Dosage: 4.5 MG, QD (1.5MG 3*/JOUR)
     Route: 048
     Dates: start: 20241010, end: 20241106

REACTIONS (2)
  - Encephalopathy [Recovered/Resolved]
  - Dermatitis acneiform [Unknown]

NARRATIVE: CASE EVENT DATE: 20241101
